FAERS Safety Report 4505435-4 (Version None)
Quarter: 2004Q4

REPORT INFORMATION
  Report Type: 
  Country: None (occurrence: None)
  Receive Date: 20041116
  Receipt Date: 20041109
  Transmission Date: 20050328
  Serious: Yes (Life-Threatening)
  Sender: FDA-Public Use
  Company Number: 2004AP05710

PATIENT
  Age: 60 Year
  Sex: Male

DRUGS (2)
  1. IRESSA [Suspect]
     Dosage: 250 MG DAILY PO
     Route: 048
     Dates: start: 20031002
  2. PACLITAXEL [Suspect]

REACTIONS (3)
  - DEMENTIA [None]
  - DISORIENTATION [None]
  - NEUROPATHY PERIPHERAL [None]
